FAERS Safety Report 7679893-0 (Version None)
Quarter: 2011Q3

REPORT INFORMATION
  Report Type: 
  Country: None (occurrence: None)
  Receive Date: 20110812
  Receipt Date: 20110810
  Transmission Date: 20111222
  Serious: Yes (Other)
  Sender: FDA-Public Use
  Company Number: US-PFIZER INC-2011184360

PATIENT
  Sex: Female

DRUGS (2)
  1. PREPARATION H [Suspect]
     Indication: FUNCTIONAL GASTROINTESTINAL DISORDER
     Dosage: 2 TIMES A DAY
     Dates: start: 20110808
  2. PREPARATION H [Suspect]
     Indication: LAXATIVE SUPPORTIVE CARE

REACTIONS (1)
  - HAEMATOCHEZIA [None]
